FAERS Safety Report 18377634 (Version 4)
Quarter: 2020Q4

REPORT INFORMATION
  Report Type: Spontaneous
  Country: US (occurrence: US)
  Receive Date: 20201013
  Receipt Date: 20201130
  Transmission Date: 20210114
  Serious: Yes (Other)
  Sender: FDA-Public Use
  Company Number: US-PFIZER INC-2020391332

PATIENT
  Age: 56 Year
  Sex: Female
  Weight: 53.98 kg

DRUGS (2)
  1. PREMARIN [Suspect]
     Active Substance: ESTROGENS, CONJUGATED
     Dosage: 0.625 MG, 1X/DAY
     Route: 048
     Dates: start: 20200908
  2. PREMARIN [Suspect]
     Active Substance: ESTROGENS, CONJUGATED
     Indication: OESTROGEN DEFICIENCY
     Dosage: UNK
     Dates: start: 201306

REACTIONS (6)
  - Malaise [Unknown]
  - Uterine leiomyoma [Unknown]
  - Ovarian disorder [Unknown]
  - Uterine enlargement [Unknown]
  - Expired product administered [Unknown]
  - Uterine spasm [Unknown]

NARRATIVE: CASE EVENT DATE: 2019
